FAERS Safety Report 4261678-9 (Version None)
Quarter: 2004Q1

REPORT INFORMATION
  Report Type: 
  Country: None (occurrence: None)
  Receive Date: 20031229
  Receipt Date: 20031212
  Transmission Date: 20041129
  Serious: Yes (Hospitalization, Other)
  Sender: FDA-Public Use
  Company Number: 2003124516

PATIENT
  Age: 52 Year
  Sex: Female
  Weight: 90.7194 kg

DRUGS (3)
  1. ZITHROMAX [Suspect]
     Indication: SKIN DISORDER
     Dosage: 250 MG (DAILY), ORAL
     Route: 048
     Dates: start: 20011101
  2. ACETAZOLAMIDE [Concomitant]
     Indication: BENIGN INTRACRANIAL HYPERTENSION
  3. ANALGESICS [Concomitant]
     Indication: HEADACHE

REACTIONS (10)
  - BRONCHITIS [None]
  - DIARRHOEA [None]
  - DISORIENTATION [None]
  - DRUG INTERACTION [None]
  - FEELING ABNORMAL [None]
  - HEADACHE [None]
  - HEPATIC FAILURE [None]
  - PNEUMONIA [None]
  - TREATMENT NONCOMPLIANCE [None]
  - VISUAL DISTURBANCE [None]
